FAERS Safety Report 6005885-3 (Version None)
Quarter: 2008Q4

REPORT INFORMATION
  Report Type: 
  Country: None (occurrence: None)
  Receive Date: 20081216
  Receipt Date: 20081216
  Transmission Date: 20090506
  Serious: Yes (Other)
  Sender: FDA-Public Use
  Company Number: None

PATIENT
  Sex: Female
  Weight: 105.09 kg

DRUGS (8)
  1. ARAVA [Suspect]
     Dosage: 20MG TABLET QD ORAL
     Route: 048
     Dates: start: 20080818, end: 20081216
  2. ATIVAN [Concomitant]
  3. DESONIDE [Concomitant]
  4. FOLIC ACID [Concomitant]
  5. HYDROCHLOROTHIAZIDE [Concomitant]
  6. MVI (MULTIVITAMINS) [Concomitant]
  7. REMICADE [Concomitant]
  8. VITAMIN E (TOCOPHEROL-DL-ALPHA) [Concomitant]

REACTIONS (1)
  - ADVERSE EVENT [None]
